FAERS Safety Report 13736876 (Version 1)
Quarter: 2017Q3

REPORT INFORMATION
  Report Type: Report from Study
  Country: CA (occurrence: CA)
  Receive Date: 20170710
  Receipt Date: 20170710
  Transmission Date: 20171127
  Serious: Yes (Other)
  Sender: FDA-Public Use
  Company Number: CA-JNJFOC-20170701908

PATIENT
  Sex: Female
  Weight: 56 kg

DRUGS (2)
  1. REMICADE [Suspect]
     Active Substance: INFLIXIMAB
     Indication: CROHN^S DISEASE
     Dosage: 4TH INFUSION.
     Route: 042
     Dates: start: 20170629
  2. REMICADE [Suspect]
     Active Substance: INFLIXIMAB
     Indication: CROHN^S DISEASE
     Route: 042
     Dates: start: 20170323

REACTIONS (5)
  - Complication associated with device [Unknown]
  - Loss of consciousness [Recovered/Resolved]
  - Face oedema [Unknown]
  - Fall [Recovered/Resolved]
  - Facial pain [Unknown]

NARRATIVE: CASE EVENT DATE: 2017
